FAERS Safety Report 18582741 (Version 1)
Quarter: 2020Q4

REPORT INFORMATION
  Report Type: Spontaneous
  Country: HR (occurrence: HR)
  Receive Date: 20201205
  Receipt Date: 20201205
  Transmission Date: 20210114
  Serious: Yes (Hospitalization)
  Sender: FDA-Public Use
  Company Number: HR-TAKEDA-HR201814672

PATIENT
  Age: 31 Year
  Sex: Male

DRUGS (40)
  1. LAMOTRIGINE. [Suspect]
     Active Substance: LAMOTRIGINE
     Indication: SOMATIC SYMPTOM DISORDER
     Dosage: DOSAGE FORM: UNSPECIFIED
     Route: 065
     Dates: start: 2011
  2. OLANZAPINE. [Concomitant]
     Active Substance: OLANZAPINE
     Indication: ADJUSTMENT DISORDER
  3. OLANZAPINE. [Concomitant]
     Active Substance: OLANZAPINE
     Indication: HYPOMANIA
  4. OLANZAPINE. [Concomitant]
     Active Substance: OLANZAPINE
     Indication: DEPRESSION
  5. DIAZEPAM. [Suspect]
     Active Substance: DIAZEPAM
     Indication: SCHIZOAFFECTIVE DISORDER
  6. DIAZEPAM. [Suspect]
     Active Substance: DIAZEPAM
     Indication: HYPOMANIA
  7. CLOZAPINE. [Suspect]
     Active Substance: CLOZAPINE
     Indication: SOMATIC SYMPTOM DISORDER
  8. FLUVOXAMINE [Concomitant]
     Active Substance: FLUVOXAMINE
     Indication: PSYCHOTIC DISORDER
  9. DIAZEPAM. [Suspect]
     Active Substance: DIAZEPAM
     Indication: ESSENTIAL HYPERTENSION
     Dosage: DOSAGE FORM: UNSPECIFIED
     Route: 065
     Dates: start: 2011
  10. CONCOR [Suspect]
     Active Substance: BISOPROLOL FUMARATE
     Indication: SCHIZOAFFECTIVE DISORDER
  11. LAMOTRIGINE. [Suspect]
     Active Substance: LAMOTRIGINE
     Indication: ESSENTIAL HYPERTENSION
  12. RISPOLEPT CONSTA [Suspect]
     Active Substance: RISPERIDONE
     Indication: SCHIZOAFFECTIVE DISORDER
     Dosage: 37.5 MG, UNK
     Route: 065
     Dates: start: 201110, end: 201304
  13. BYOL [Suspect]
     Active Substance: BISOPROLOL
     Indication: SCHIZOAFFECTIVE DISORDER
     Dosage: DOSAGE FORM: UNSPECIFIED
     Route: 065
  14. OXAZEPAM. [Concomitant]
     Active Substance: OXAZEPAM
     Indication: HYPOMANIA
  15. DIAZEPAM. [Suspect]
     Active Substance: DIAZEPAM
     Indication: SOMATIC SYMPTOM DISORDER
     Dosage: DOSAGE FORM: UNSPECIFIED
     Route: 065
     Dates: start: 2010
  16. CONCOR [Suspect]
     Active Substance: BISOPROLOL FUMARATE
     Indication: ESSENTIAL HYPERTENSION
  17. CLOZAPINE. [Suspect]
     Active Substance: CLOZAPINE
     Indication: SCHIZOAFFECTIVE DISORDER
     Dosage: DOSAGE FORM: UNSPECIFIED
     Route: 065
  18. RAMIPRIL. [Suspect]
     Active Substance: RAMIPRIL
     Indication: SCHIZOAFFECTIVE DISORDER
     Dosage: DOSAGE FORM: UNSPECIFIED
     Route: 065
  19. OXAZEPAM. [Concomitant]
     Active Substance: OXAZEPAM
     Indication: PSYCHOTIC DISORDER
  20. DIAZEPAM. [Suspect]
     Active Substance: DIAZEPAM
     Indication: DEPRESSION
     Dosage: DOSAGE FORM: UNSPECIFIED
     Route: 065
     Dates: start: 200812
  21. CONCOR [Suspect]
     Active Substance: BISOPROLOL FUMARATE
     Indication: PSYCHOTIC DISORDER
  22. RISPERIDONE. [Suspect]
     Active Substance: RISPERIDONE
     Indication: SOMATIC SYMPTOM DISORDER
     Dosage: DOSAGE FORM: UNSPECIFIED
     Route: 048
  23. LAMOTRIGINE. [Suspect]
     Active Substance: LAMOTRIGINE
     Indication: BIPOLAR DISORDER
     Dosage: DOSAGE FORM: UNSPECIFIED
     Route: 065
     Dates: start: 2010
  24. LAMOTRIGINE. [Suspect]
     Active Substance: LAMOTRIGINE
     Indication: DEPRESSION
  25. PAROXETINE. [Concomitant]
     Active Substance: PAROXETINE
     Indication: DEPRESSION
  26. DIAZEPAM. [Suspect]
     Active Substance: DIAZEPAM
     Indication: BIPOLAR DISORDER
  27. DIAZEPAM. [Suspect]
     Active Substance: DIAZEPAM
     Indication: PSYCHOTIC DISORDER
  28. DIAZEPAM. [Suspect]
     Active Substance: DIAZEPAM
     Indication: ADJUSTMENT DISORDER
  29. LAMOTRIGINE. [Suspect]
     Active Substance: LAMOTRIGINE
     Indication: PSYCHOTIC DISORDER
  30. LAMOTRIGINE. [Suspect]
     Active Substance: LAMOTRIGINE
     Indication: ADJUSTMENT DISORDER
  31. PAROXETINE. [Concomitant]
     Active Substance: PAROXETINE
     Indication: BIPOLAR DISORDER
  32. RISPERIDONE. [Suspect]
     Active Substance: RISPERIDONE
     Indication: SCHIZOAFFECTIVE DISORDER
  33. LAMOTRIGINE. [Suspect]
     Active Substance: LAMOTRIGINE
     Indication: HYPOMANIA
  34. RISPOLEPT CONSTA [Suspect]
     Active Substance: RISPERIDONE
     Dosage: 50 MG, UNK
     Route: 065
     Dates: start: 201304, end: 201505
  35. CONCOR [Suspect]
     Active Substance: BISOPROLOL FUMARATE
     Indication: SOMATIC SYMPTOM DISORDER
     Dosage: UNK
     Route: 065
  36. RISPERIDONE. [Suspect]
     Active Substance: RISPERIDONE
     Indication: PSYCHOTIC DISORDER
     Dosage: 3 MG, UNK
     Route: 048
  37. RISPERIDONE. [Suspect]
     Active Substance: RISPERIDONE
     Indication: ESSENTIAL HYPERTENSION
     Dosage: DOSAGE FORM: UNSPECIFIED
     Route: 048
  38. LAMOTRIGINE. [Suspect]
     Active Substance: LAMOTRIGINE
     Indication: SCHIZOAFFECTIVE DISORDER
     Dosage: UNK
     Route: 065
     Dates: start: 2008
  39. BYOL [Suspect]
     Active Substance: BISOPROLOL
     Indication: SOMATIC SYMPTOM DISORDER
  40. OLANZAPINE. [Concomitant]
     Active Substance: OLANZAPINE
     Indication: BIPOLAR DISORDER

REACTIONS (2)
  - Illusion [Recovered/Resolved]
  - Depression [Recovered/Resolved]

NARRATIVE: CASE EVENT DATE: 201304
